FAERS Safety Report 8319163-0 (Version None)
Quarter: 2012Q2

REPORT INFORMATION
  Report Type: 
  Country: None (occurrence: None)
  Receive Date: 20120427
  Receipt Date: 20120413
  Transmission Date: 20120825
  Serious: No
  Sender: FDA-Public Use
  Company Number: US-ENDO PHARMACEUTICALS INC.-ENDC20120025

PATIENT
  Sex: Female

DRUGS (3)
  1. OXYCODONE AND ACETAMINOPHEN [Suspect]
     Indication: PAIN
     Dosage: 40/1300 MG
     Route: 048
     Dates: start: 20120101, end: 20120101
  2. OPANA [Concomitant]
     Indication: PAIN
     Dosage: 10 MG
     Route: 048
     Dates: end: 20120101
  3. OXYCODONE AND ACETAMINOPHEN [Suspect]
     Dosage: 50/1625 MG
     Route: 048
     Dates: start: 20120101

REACTIONS (2)
  - DRUG INEFFECTIVE [None]
  - INTENTIONAL DRUG MISUSE [None]
